FAERS Safety Report 16175750 (Version 2)
Quarter: 2019Q2

REPORT INFORMATION
  Report Type: Spontaneous
  Country: AT (occurrence: AT)
  Receive Date: 20190409
  Receipt Date: 20190528
  Transmission Date: 20190711
  Serious: Yes (Other)
  Sender: FDA-Public Use
  Company Number: AT-NAPPMUNDI-GBR-2019-0065653

PATIENT
  Age: 80 Year
  Sex: Female

DRUGS (4)
  1. HYDAL [Suspect]
     Active Substance: HYDROMORPHONE HYDROCHLORIDE
     Indication: ARTHRALGIA
     Dosage: 1.3 MG UP TO TWO TIMES AS NEEDED (STRENGTH 1.3MG)
     Route: 048
     Dates: start: 201902, end: 201904
  2. HYDAL [Suspect]
     Active Substance: HYDROMORPHONE HYDROCHLORIDE
     Indication: ARTHRALGIA
     Dosage: 6 MG, DAILY (4MG ONCE IN THE MORNING AND 2MG ONCE IN THE EVENING)
     Route: 048
     Dates: end: 201904
  3. HYDAL [Suspect]
     Active Substance: HYDROMORPHONE HYDROCHLORIDE
     Indication: SPINAL PAIN
  4. HYDAL [Suspect]
     Active Substance: HYDROMORPHONE HYDROCHLORIDE
     Indication: SPINAL PAIN
     Dosage: 4 MG, BID (STRENGTH 4MG)
     Route: 048
     Dates: start: 201902

REACTIONS (3)
  - Panic attack [Recovered/Resolved]
  - Suicidal ideation [Recovered/Resolved]
  - Nightmare [Recovered/Resolved]

NARRATIVE: CASE EVENT DATE: 201903
